FAERS Safety Report 8962756 (Version 3)
Quarter: 2014Q2

REPORT INFORMATION
  Report Type: Report from Study
  Country: BE (occurrence: BE)
  Receive Date: 20121213
  Receipt Date: 20131018
  Transmission Date: 20141212
  Serious: Yes (Hospitalization)
  Sender: FDA-Public Use
  Company Number: BE-PFIZER INC-2012310961

PATIENT
  Age: 70 Year
  Sex: Male
  Weight: 83.4 kg

DRUGS (24)
  1. METHYLPREDNISOLONE [Suspect]
     Indication: PROPHYLAXIS AGAINST TRANSPLANT REJECTION
     Dosage: 4 MG, UNK
     Route: 048
     Dates: start: 20030809
  2. METHYLPREDNISOLONE SODIUM SUCCINATE [Suspect]
     Indication: PROPHYLAXIS AGAINST TRANSPLANT REJECTION
     Dosage: 500 MG, 1X/DAY
     Route: 042
     Dates: start: 20030808, end: 20030808
  3. DACLIZUMAB [Suspect]
     Indication: PROPHYLAXIS AGAINST TRANSPLANT REJECTION
     Dosage: 175 MG ONCE
     Route: 042
     Dates: start: 20030808, end: 20030808
  4. DACLIZUMAB [Suspect]
     Dosage: 88 MG, 1 IN 2WK (WEEK 2,4,6)
     Route: 042
     Dates: start: 20030822
  5. DACLIZUMAB [Suspect]
     Dosage: 85 MG, UNK
     Route: 042
     Dates: start: 20031001, end: 20031002
  6. MYCOPHENOLATE MOFETIL [Suspect]
     Indication: PROPHYLAXIS AGAINST TRANSPLANT REJECTION
     Dosage: 1 G, 1X/DAY
     Route: 048
     Dates: start: 20030808
  7. MYCOPHENOLATE MOFETIL [Suspect]
     Dosage: 1 G, 2X/DAY
     Route: 048
     Dates: start: 20030809
  8. MYCOPHENOLATE MOFETIL [Suspect]
     Dosage: 500 MG, 2X/DAY
     Route: 048
     Dates: start: 20031127
  9. TACROLIMUS [Suspect]
     Indication: PROPHYLAXIS AGAINST TRANSPLANT REJECTION
     Dosage: 4 MG, 1X/DAY
     Route: 048
     Dates: start: 20030808
  10. INDAPAMIDE [Concomitant]
     Route: 050
  11. ACETYLSALICYLIC ACID [Concomitant]
     Route: 048
  12. LISINOPRIL [Concomitant]
     Dosage: 5 MG, 1X/DAY
     Route: 048
     Dates: start: 20030827, end: 20031112
  13. OMEPRAZOLE [Concomitant]
     Dosage: 20 MG, 1X/DAY
     Route: 048
     Dates: start: 20030814
  14. OMEPRAZOLE [Concomitant]
     Dosage: 20 MG, 2X/DAY
     Route: 048
     Dates: start: 20031128
  15. OMEPRAZOLE [Concomitant]
     Dosage: 20 MG, 1X/DAY
     Route: 048
     Dates: start: 20040420
  16. GANCICLOVIR [Concomitant]
     Dosage: 500 MG, 1 IN 3 WK
     Dates: start: 20030811
  17. GANCICLOVIR [Concomitant]
     Dosage: 500 MG, 1X/DAY
     Dates: start: 20030816, end: 20031112
  18. EUSAPRIM [Concomitant]
     Dosage: 1 DF, 1X/DAY
     Route: 048
     Dates: start: 20030810, end: 20031112
  19. IRBESARTAN [Concomitant]
     Dosage: 150 MG, 1X/DAY
     Route: 048
     Dates: start: 20031125, end: 20031128
  20. IRBESARTAN [Concomitant]
     Dosage: 150 MG, 2X/DAY
     Route: 048
     Dates: start: 20041019
  21. CEFAZOLIN [Concomitant]
     Dosage: 2 G, 1X/DAY
     Route: 042
     Dates: start: 20030808, end: 20030810
  22. EPOETIN ALFA [Concomitant]
     Dosage: 40 UG, 1 WEEK
     Route: 058
     Dates: start: 20030816
  23. DOXYCYCLINE [Concomitant]
     Dosage: 100 MG, 1X/DAY
     Route: 048
     Dates: start: 20030930, end: 20031019
  24. LISINOPRIL DIHYDRATE [Concomitant]
     Dosage: 20 MG, 1X/DAY
     Route: 048
     Dates: start: 20031112, end: 20031125

REACTIONS (2)
  - Diarrhoea [Recovered/Resolved]
  - Colitis [Recovered/Resolved]
